FAERS Safety Report 20985584 (Version 2)
Quarter: 2022Q3

REPORT INFORMATION
  Report Type: Spontaneous
  Country: ET (occurrence: ET)
  Receive Date: 20220621
  Receipt Date: 20220714
  Transmission Date: 20221026
  Serious: Yes (Death, Other)
  Sender: FDA-Public Use
  Company Number: ET-BAUSCH-BL-2022-015097

PATIENT
  Age: 39 Year
  Sex: Female

DRUGS (13)
  1. DEXAMETHASONE [Suspect]
     Active Substance: DEXAMETHASONE
     Indication: COVID-19
     Route: 042
     Dates: start: 202107, end: 2021
  2. PREDNISOLONE [Suspect]
     Active Substance: PREDNISOLONE
     Indication: Angle closure glaucoma
     Route: 048
     Dates: start: 2021
  3. PREDNISONE [Suspect]
     Active Substance: PREDNISONE
     Indication: COVID-19
     Route: 048
     Dates: start: 2021, end: 2021
  4. TIMOLOL [Concomitant]
     Active Substance: TIMOLOL
     Indication: Angle closure glaucoma
     Dates: start: 2021
  5. TROPICAMIDE [Concomitant]
     Active Substance: TROPICAMIDE
     Indication: Angle closure glaucoma
     Dates: start: 2021
  6. ACETAZOLAMIDE [Concomitant]
     Active Substance: ACETAZOLAMIDE
     Indication: Angle closure glaucoma
     Route: 048
     Dates: start: 2021
  7. AZITHROMYCIN [Concomitant]
     Active Substance: AZITHROMYCIN
     Indication: COVID-19
     Dates: start: 2021
  8. CEFTRIAXONE\SULBACTAM [Concomitant]
     Active Substance: CEFTRIAXONE\SULBACTAM
     Indication: COVID-19
     Route: 042
     Dates: start: 202107, end: 2021
  9. HEPARIN [Concomitant]
     Active Substance: HEPARIN SODIUM
     Indication: Product used for unknown indication
     Dosage: 17500 (UNIT UNSPECIFIED)
     Route: 058
     Dates: start: 202107
  10. VITAMIN C [Concomitant]
     Active Substance: ASCORBIC ACID
     Indication: Product used for unknown indication
     Route: 048
     Dates: start: 202107
  11. ZINC [Concomitant]
     Active Substance: ZINC
     Indication: Product used for unknown indication
     Route: 048
     Dates: start: 202107
  12. INSULIN NOS [Concomitant]
     Active Substance: INSULIN NOS
     Indication: Diabetes mellitus inadequate control
     Dosage: 16/8
     Route: 058
     Dates: start: 2021, end: 2021
  13. INSULIN NOS [Concomitant]
     Active Substance: INSULIN NOS
     Dosage: 28/14
     Route: 058
     Dates: start: 2021

REACTIONS (3)
  - Multiple organ dysfunction syndrome [Fatal]
  - Septic shock [Fatal]
  - Rhinocerebral mucormycosis [Not Recovered/Not Resolved]

NARRATIVE: CASE EVENT DATE: 20210101
